FAERS Safety Report 20864440 (Version 1)
Quarter: 2022Q2

REPORT INFORMATION
  Report Type: Spontaneous
  Country: QA (occurrence: QA)
  Receive Date: 20220524
  Receipt Date: 20220524
  Transmission Date: 20220720
  Serious: Yes (Other)
  Sender: FDA-Public Use
  Company Number: QA-SUN PHARMACEUTICAL INDUSTRIES LTD-2022RR-337503

PATIENT
  Age: 17 Year
  Sex: Female

DRUGS (2)
  1. METFORMIN [Suspect]
     Active Substance: METFORMIN HYDROCHLORIDE
     Indication: Insulin resistance
     Dosage: UNK
     Route: 065
  2. MEDROXYPROGESTERONE [Suspect]
     Active Substance: MEDROXYPROGESTERONE
     Indication: Endometrial hyperplasia
     Dosage: 5 DAYS, ONCE EVERY 3 MONTHS
     Route: 065

REACTIONS (2)
  - Drug ineffective [Unknown]
  - Hepatic adenoma [Unknown]
